FAERS Safety Report 17194417 (Version 2)
Quarter: 2020Q1

REPORT INFORMATION
  Report Type: Spontaneous
  Country: US (occurrence: US)
  Receive Date: 20191224
  Receipt Date: 20200204
  Transmission Date: 20200409
  Serious: No
  Sender: FDA-Public Use
  Company Number: US-GLAXOSMITHKLINE-US2019233554

PATIENT
  Sex: Female

DRUGS (3)
  1. NICODERM CQ [Suspect]
     Active Substance: NICOTINE
     Indication: SMOKING CESSATION THERAPY
     Dosage: 1 PATCH
     Dates: start: 201911
  2. NICODERM CQ [Suspect]
     Active Substance: NICOTINE
     Indication: ELECTRONIC CIGARETTE USER
     Dosage: 1 PATCH
     Dates: start: 201911, end: 201911
  3. NICODERM CQ [Suspect]
     Active Substance: NICOTINE
     Dosage: UNK, ONE PATCH
     Dates: start: 20181001, end: 20181002

REACTIONS (6)
  - Application site dryness [Recovered/Resolved]
  - Application site pruritus [Recovered/Resolved]
  - Product use issue [Unknown]
  - Application site erythema [Recovered/Resolved]
  - Application site rash [Recovered/Resolved]
  - Product use in unapproved indication [Unknown]
